FAERS Safety Report 11326236 (Version 1)
Quarter: 2015Q3

REPORT INFORMATION
  Report Type: Spontaneous
  Country: CN (occurrence: None)
  Receive Date: 20150729
  Receipt Date: 20150729
  Transmission Date: 20151125
  Serious: Yes (Other)
  Sender: FDA-Public Use
  Company Number: CN-2015VAL000483

PATIENT
  Age: 71 Year
  Sex: Female

DRUGS (1)
  1. ROCALTROL [Suspect]
     Active Substance: CALCITRIOL
     Indication: OSTEOPOROSIS POSTMENOPAUSAL
     Dosage: 0.25 UG, 1 IN 2 D
     Route: 048
     Dates: end: 20150710

REACTIONS (2)
  - Platelet count decreased [None]
  - White blood cell count decreased [None]
